FAERS Safety Report 4783156-0 (Version None)
Quarter: 2005Q3

REPORT INFORMATION
  Report Type: 
  Country: None (occurrence: None)
  Receive Date: 20050929
  Receipt Date: 20050805
  Transmission Date: 20060218
  Serious: Yes (Other)
  Sender: FDA-Public Use
  Company Number: US-GLAXOSMITHKLINE-A0569132A

PATIENT
  Age: 45 Year
  Sex: Female

DRUGS (5)
  1. WELLBUTRIN [Suspect]
     Indication: DEPRESSION
     Dates: start: 19960101
  2. WELLBUTRIN [Suspect]
     Dosage: 300MG TWICE PER DAY
     Route: 048
  3. THYROID TAB [Suspect]
  4. FOSAMAX [Concomitant]
  5. MULTIVITAMINS + SUPPLEMENTS [Concomitant]

REACTIONS (12)
  - ABDOMINAL DISTENSION [None]
  - ADRENAL INSUFFICIENCY [None]
  - BACTERIAL INFECTION [None]
  - BRUXISM [None]
  - DIARRHOEA [None]
  - DRUG EFFECT INCREASED [None]
  - FATIGUE [None]
  - FLATULENCE [None]
  - HEADACHE [None]
  - MEDICATION ERROR [None]
  - NECK PAIN [None]
  - THYROID DISORDER [None]
